FAERS Safety Report 6572875-1 (Version None)
Quarter: 2010Q1

REPORT INFORMATION
  Report Type: 
  Country: None (occurrence: None)
  Receive Date: 20100207
  Receipt Date: 20100201
  Transmission Date: 20100710
  Serious: Yes (Hospitalization, Other)
  Sender: FDA-Public Use
  Company Number: US-ELI_LILLY_AND_COMPANY-US201002000606

PATIENT
  Sex: Male

DRUGS (3)
  1. HUMALOG [Suspect]
     Indication: DIABETES MELLITUS
     Dosage: UNK, 4/D
     Dates: start: 20010101
  2. LANTUS [Concomitant]
  3. GLYBURIDE [Concomitant]

REACTIONS (6)
  - BLOOD POTASSIUM ABNORMAL [None]
  - GAIT DISTURBANCE [None]
  - HOSPITALISATION [None]
  - RENAL FAILURE [None]
  - SWELLING [None]
  - WEIGHT INCREASED [None]
